FAERS Safety Report 6567625-9 (Version None)
Quarter: 2010Q1

REPORT INFORMATION
  Report Type: 
  Country: None (occurrence: None)
  Receive Date: 20100202
  Receipt Date: 20100122
  Transmission Date: 20100710
  Serious: Yes (Other)
  Sender: FDA-Public Use
  Company Number: FR-GENENTECH-297351

PATIENT
  Sex: Female

DRUGS (2)
  1. MABTHERA [Suspect]
     Indication: OSTEOCHONDROSIS
     Dosage: UNK UNK, Q8W
     Route: 042
     Dates: start: 20070101
  2. VIREAD [Suspect]
     Indication: HEPATITIS C
     Dosage: UNK
     Route: 048
     Dates: start: 20090401

REACTIONS (1)
  - VULVOVAGINAL ULCERATION [None]
